FAERS Safety Report 6468688-1 (Version None)
Quarter: 2009Q4

REPORT INFORMATION
  Report Type: 
  Country: None (occurrence: None)
  Receive Date: 20091203
  Receipt Date: 20091103
  Transmission Date: 20100525
  Serious: No
  Sender: FDA-Public Use
  Company Number: US-BAYER-200938216NA

PATIENT
  Age: 23 Year
  Sex: Female

DRUGS (2)
  1. YAZ [Suspect]
     Indication: POLYCYSTIC OVARIES
     Dosage: TOTAL DAILY DOSE: 1 DF
     Route: 048
  2. YAZ [Suspect]
     Dosage: TOTAL DAILY DOSE: 1 DF
     Route: 048

REACTIONS (5)
  - ALOPECIA [None]
  - BLOOD TESTOSTERONE INCREASED [None]
  - MIGRAINE [None]
  - THYROID FUNCTION TEST ABNORMAL [None]
  - WEIGHT DECREASED [None]
